FAERS Safety Report 17576431 (Version 1)
Quarter: 2020Q1

REPORT INFORMATION
  Report Type: Spontaneous
  Country: US (occurrence: US)
  Receive Date: 20200318
  Receipt Date: 20200318
  Transmission Date: 20200409
  Serious: Yes (Hospitalization)
  Sender: FDA-Public Use
  Company Number: None

PATIENT
  Sex: Female

DRUGS (3)
  1. MYCOPHENOLIC [Concomitant]
     Active Substance: MYCOPHENOLIC ACID
  2. TACROLIMUS 0.5MG CAP [Concomitant]
     Active Substance: TACROLIMUS
     Indication: ORGAN TRANSPLANT
     Dosage: ?          OTHER FREQUENCY:QAM;?
     Route: 048
     Dates: start: 20190123
  3. TACROLIMUS 1 MG CAP [Suspect]
     Active Substance: TACROLIMUS
     Indication: ORGAN TRANSPLANT
     Dosage: ?          OTHER FREQUENCY:QPM;?
     Route: 048
     Dates: start: 20190123

REACTIONS (3)
  - Pain [None]
  - Palpitations [None]
  - Aneurysm [None]
